FAERS Safety Report 6220210-0 (Version None)
Quarter: 2009Q2

REPORT INFORMATION
  Report Type: 
  Country: None (occurrence: None)
  Receive Date: 20090605
  Receipt Date: 20090522
  Transmission Date: 20091009
  Serious: Yes (Other)
  Sender: FDA-Public Use
  Company Number: ENTC2009-0168

PATIENT
  Age: 42 Year
  Sex: Female

DRUGS (1)
  1. STALEVO 100 [Suspect]
     Indication: PARKINSON'S DISEASE
     Dosage: 50MG 13 TABLETS DAILY, ORAL
     Route: 048
     Dates: start: 20010101

REACTIONS (2)
  - BRAIN OPERATION [None]
  - DIABETES MELLITUS INADEQUATE CONTROL [None]
